FAERS Safety Report 8737371 (Version 2)
Quarter: 2012Q4

REPORT INFORMATION
  Report Type: 
  Country: US (occurrence: US)
  Receive Date: 20120822
  Receipt Date: 20120828
  Transmission Date: 20130627
  Serious: Yes (Death)
  Sender: FDA-Public Use
  Company Number: US-PFIZER INC-2012201949

PATIENT
  Age: 59 Year
  Sex: Female

DRUGS (2)
  1. RAPAMUNE [Suspect]
     Indication: LIVER TRANSPLANT
     Dosage: 3-1 mg daily
     Dates: start: 20120228
  2. REVATIO [Suspect]
     Indication: HEPATIC NEOPLASM MALIGNANT
     Dosage: three 20 mg tablets daily

REACTIONS (2)
  - Death [Fatal]
  - Off label use [Unknown]
